FAERS Safety Report 15995183 (Version 1)
Quarter: 2019Q1

REPORT INFORMATION
  Report Type: Spontaneous
  Country: ES (occurrence: ES)
  Receive Date: 20190222
  Receipt Date: 20190222
  Transmission Date: 20190418
  Serious: Yes (Other)
  Sender: FDA-Public Use
  Company Number: ES-BAYER-2019-032753

PATIENT
  Age: 34 Year
  Sex: Male

DRUGS (1)
  1. BAYCIP [Suspect]
     Active Substance: CIPROFLOXACIN
     Dosage: 50 MG, UNK
     Route: 048
     Dates: start: 20190123, end: 20190128

REACTIONS (3)
  - Dizziness [Unknown]
  - Tachycardia [Unknown]
  - Chest discomfort [Unknown]

NARRATIVE: CASE EVENT DATE: 20190128
